FAERS Safety Report 13001140 (Version 1)
Quarter: 2016Q4

REPORT INFORMATION
  Report Type: Spontaneous
  Country: DK (occurrence: DK)
  Receive Date: 20161206
  Receipt Date: 20161206
  Transmission Date: 20170207
  Serious: Yes (Hospitalization)
  Sender: FDA-Public Use
  Company Number: DK-AUROBINDO-AUR-APL-2016-15078

PATIENT
  Age: 43 Year
  Sex: Male

DRUGS (1)
  1. LAMOTRIGINE AUROBINDO TABLET [Suspect]
     Active Substance: LAMOTRIGINE
     Indication: EPILEPSY
     Dosage: 1 TAB/DAY
     Route: 065
     Dates: end: 201506

REACTIONS (2)
  - Dyspnoea [Unknown]
  - Alveolitis allergic [Unknown]

NARRATIVE: CASE EVENT DATE: 201503
